FAERS Safety Report 13663255 (Version 1)
Quarter: 2017Q2

REPORT INFORMATION
  Report Type: Spontaneous
  Country: US (occurrence: US)
  Receive Date: 20170619
  Receipt Date: 20170619
  Transmission Date: 20170830
  Serious: No
  Sender: FDA-Public Use
  Company Number: US-TEVA-743791USA

PATIENT
  Age: 63 Year
  Sex: Female

DRUGS (2)
  1. GUAIFENESIN EXTENDED RELEASE [Suspect]
     Active Substance: GUAIFENESIN
     Indication: SECRETION DISCHARGE
     Dates: start: 20161123, end: 20161130
  2. GUAIFENESIN EXTENDED RELEASE [Suspect]
     Active Substance: GUAIFENESIN
     Indication: CHRONIC OBSTRUCTIVE PULMONARY DISEASE

REACTIONS (1)
  - Drug ineffective [Unknown]
